FAERS Safety Report 24835339 (Version 2)
Quarter: 2025Q1

REPORT INFORMATION
  Report Type: Spontaneous
  Country: JP (occurrence: JP)
  Receive Date: 20250113
  Receipt Date: 20250228
  Transmission Date: 20250409
  Serious: Yes (Other)
  Sender: AMGEN
  Company Number: JP-TAKEDA-2025TJP000088

PATIENT
  Age: 5 Decade
  Sex: Male

DRUGS (4)
  1. VECTIBIX [Suspect]
     Active Substance: PANITUMUMAB
     Indication: Colon cancer
     Dosage: 6 MILLIGRAM/KILOGRAM, Q2WEEKS
     Route: 041
     Dates: start: 202401
  2. OXALIPLATIN [Suspect]
     Active Substance: OXALIPLATIN
     Indication: Product used for unknown indication
     Route: 065
  3. LEVOLEUCOVORIN CALCIUM [Suspect]
     Active Substance: LEVOLEUCOVORIN CALCIUM
     Indication: Product used for unknown indication
     Route: 065
  4. FLUOROURACIL [Suspect]
     Active Substance: FLUOROURACIL
     Indication: Product used for unknown indication
     Route: 065

REACTIONS (8)
  - Neuropathy peripheral [Unknown]
  - Neck pain [Unknown]
  - Back pain [Unknown]
  - Erythema [Recovered/Resolved]
  - Acne [Recovered/Resolved]
  - Paronychia [Recovered/Resolved]
  - Neutrophil count decreased [Recovered/Resolved]
  - Rash [Recovered/Resolved]
